FAERS Safety Report 17772720 (Version 5)
Quarter: 2020Q2

REPORT INFORMATION
  Report Type: Report from Study
  Country: JP (occurrence: JP)
  Receive Date: 20200512
  Receipt Date: 20200603
  Transmission Date: 20200714
  Serious: Yes (Hospitalization)
  Sender: FDA-Public Use
  Company Number: JP-BAYER-2020-071837

PATIENT
  Sex: Male
  Weight: 58 kg

DRUGS (23)
  1. BENDAMUSTINE [Suspect]
     Active Substance: BENDAMUSTINE
     Dosage: DAILY DOSE 250 ML
     Route: 042
     Dates: start: 20200414, end: 20200414
  2. BENDAMUSTINE [Suspect]
     Active Substance: BENDAMUSTINE
     Dosage: DAILY DOSE 250 ML
     Route: 042
     Dates: start: 20200512, end: 20200512
  3. LANSOPRAZOLE. [Suspect]
     Active Substance: LANSOPRAZOLE
     Indication: PROPHYLAXIS AGAINST GASTROINTESTINAL ULCER
     Dosage: 1 DF, QD
     Route: 048
     Dates: start: 20200414, end: 20200426
  4. ALOXI [Concomitant]
     Active Substance: PALONOSETRON HYDROCHLORIDE
     Indication: CHEMOTHERAPY
  5. DEXART [Concomitant]
     Active Substance: DEXAMETHASONE SODIUM PHOSPHATE
     Indication: PROPHYLAXIS
     Dosage: 9.9MG ONCE TIME OF BENDAMUSTINE TREATMENT
     Route: 041
     Dates: start: 20200414
  6. COPANLISIB. [Suspect]
     Active Substance: COPANLISIB
     Dosage: DAILY DOSE 104 ML
     Route: 042
     Dates: start: 20200414, end: 20200414
  7. BENDAMUSTINE [Suspect]
     Active Substance: BENDAMUSTINE
     Dosage: DAILY DOSE 250 ML
     Route: 042
     Dates: start: 20200513, end: 20200513
  8. RITUXIMAB. [Suspect]
     Active Substance: RITUXIMAB
     Dosage: DAILY DOSE 576 ML
     Route: 042
     Dates: start: 20200414, end: 20200414
  9. ACICLOVIR [Suspect]
     Active Substance: ACYCLOVIR
     Indication: INFECTION PROPHYLAXIS
     Dosage: 200 UNK
     Route: 048
     Dates: start: 20200512, end: 20200517
  10. FAMOTIDINE. [Concomitant]
     Active Substance: FAMOTIDINE
     Indication: PROPHYLAXIS AGAINST GASTROINTESTINAL ULCER
     Dosage: 20 MG, QD
     Route: 048
     Dates: start: 20200512
  11. RITUXIMAB. [Suspect]
     Active Substance: RITUXIMAB
     Dosage: DAILY DOSE 576 ML
     Route: 042
     Dates: start: 20200512, end: 20200512
  12. DAIPHEN [Suspect]
     Active Substance: SULFAMETHOXAZOLE\TRIMETHOPRIM
     Indication: INFECTION PROPHYLAXIS
     Dosage: 1 DF, QD
     Route: 048
     Dates: start: 20200414, end: 20200426
  13. RESTAMIN KOWA [Concomitant]
     Indication: PROPHYLAXIS
     Dosage: 30MG ONCE TIME OF RITUXUMAB TREATMENT
     Route: 048
     Dates: start: 20200414
  14. COPANLISIB. [Suspect]
     Active Substance: COPANLISIB
     Dosage: DAILY DOSE 104 ML
     Route: 042
     Dates: start: 20200421, end: 20200421
  15. COPANLISIB. [Suspect]
     Active Substance: COPANLISIB
     Dosage: DAILY DOSE 103 ML
     Route: 042
     Dates: start: 20200512, end: 20200512
  16. BENDAMUSTINE [Suspect]
     Active Substance: BENDAMUSTINE
     Dosage: DAILY DOSE 250 ML
     Route: 042
     Dates: start: 20200415, end: 20200415
  17. SAMTIREL [Suspect]
     Active Substance: ATOVAQUONE
     Indication: INFECTION PROPHYLAXIS
     Dosage: 200 MG, QD
     Route: 048
     Dates: start: 20200512, end: 20200517
  18. DEXART [Concomitant]
     Active Substance: DEXAMETHASONE SODIUM PHOSPHATE
     Indication: CHEMOTHERAPY
  19. SOLU-CORTEF [Concomitant]
     Active Substance: HYDROCORTISONE SODIUM SUCCINATE
     Indication: INFUSION RELATED REACTION
     Dosage: 100 MG, ONCE
     Route: 041
     Dates: start: 20200414, end: 20200414
  20. MAGNESIUM OXIDE. [Concomitant]
     Active Substance: MAGNESIUM OXIDE
     Indication: CONSTIPATION
     Dosage: 330 MG, PRN
     Route: 048
     Dates: start: 20200416, end: 20200416
  21. RESTAMIN KOWA [Concomitant]
     Indication: CHEMOTHERAPY
  22. ACICLOVIR [Suspect]
     Active Substance: ACYCLOVIR
     Indication: INFECTION PROPHYLAXIS
     Dosage: 200 MG, QD
     Route: 048
     Dates: start: 20200414, end: 20200426
  23. ALOXI [Concomitant]
     Active Substance: PALONOSETRON HYDROCHLORIDE
     Indication: PROPHYLAXIS
     Dosage: 0.75MG ONCE TIME OF RITUXUMAB TREATMENT
     Route: 041
     Dates: start: 20200414

REACTIONS (4)
  - Rash maculo-papular [Recovering/Resolving]
  - Pyrexia [Recovering/Resolving]
  - Rash maculo-papular [Recovering/Resolving]
  - Pyrexia [Recovered/Resolved]

NARRATIVE: CASE EVENT DATE: 20200423
